FAERS Safety Report 9639054 (Version 1)
Quarter: 2013Q4

REPORT INFORMATION
  Report Type: Report from Study
  Country: DE (occurrence: DE)
  Receive Date: 20131022
  Receipt Date: 20131022
  Transmission Date: 20140711
  Serious: Yes (Hospitalization, Other)
  Sender: FDA-Public Use
  Company Number: DE-ROCHE-1287662

PATIENT
  Sex: Female

DRUGS (6)
  1. PERTUZUMAB [Suspect]
     Indication: BREAST CANCER
     Dosage: LOADING DOSE
     Route: 042
  2. PERTUZUMAB [Suspect]
     Dosage: MAINTEANCE DOSE
     Route: 042
  3. TRASTUZUMAB [Suspect]
     Indication: BREAST CANCER
     Dosage: LOADING DOSE IN CYCLE 1
     Route: 042
  4. TRASTUZUMAB [Suspect]
     Dosage: MAINTENANCE DOSE
     Route: 042
  5. VINORELBINE [Suspect]
     Indication: BREAST CANCER
     Dosage: ON DAY 1 AND DAY 8 OF CYCLE 1 - LOADING DOSE
     Route: 042
  6. VINORELBINE [Suspect]
     Dosage: 30-35MG/M2 ON DAYS 1 AND DAY 8 OF EACH 3-WEEK CYCLE
     Route: 042

REACTIONS (1)
  - Myopathy [Unknown]
